FAERS Safety Report 18621336 (Version 1)
Quarter: 2020Q4

REPORT INFORMATION
  Report Type: Spontaneous
  Country: US (occurrence: US)
  Receive Date: 20201216
  Receipt Date: 20201216
  Transmission Date: 20210114
  Serious: No
  Sender: FDA-Public Use
  Company Number: US-SA-2020SA356986

PATIENT

DRUGS (1)
  1. DUPIXENT [Suspect]
     Active Substance: DUPILUMAB
     Dosage: DRUG STRUCTURE DOSAGE AND DRUG INTERVAL DOSAGE : NOT PROVIDED

REACTIONS (4)
  - Neuralgia [Unknown]
  - Myalgia [Unknown]
  - Pain in extremity [Unknown]
  - Pain [Unknown]
